FAERS Safety Report 9970593 (Version 2)
Quarter: 2014Q1

REPORT INFORMATION
  Report Type: Report from Study
  Country: PR (occurrence: PR)
  Receive Date: 20140306
  Receipt Date: 20140306
  Transmission Date: 20141002
  Serious: No
  Sender: FDA-Public Use
  Company Number: PR-ABBVIE-12P-131-1003724-00

PATIENT
  Sex: Female
  Weight: 40.86 kg

DRUGS (6)
  1. HUMIRA [Suspect]
     Indication: RHEUMATOID ARTHRITIS
     Route: 058
     Dates: start: 2012
  2. LOVASTATIN [Concomitant]
     Indication: PRODUCT USED FOR UNKNOWN INDICATION
     Route: 048
  3. LOPRESOR [Concomitant]
     Indication: HYPERTENSION
     Route: 048
  4. VASOTEC [Concomitant]
     Indication: HYPERTENSION
     Route: 048
  5. TRAMADOL [Concomitant]
     Indication: PAIN
     Route: 048
  6. NEPRESOL [Concomitant]
     Indication: GASTRITIS
     Route: 048

REACTIONS (1)
  - Hypersensitivity [Recovered/Resolved]
